FAERS Safety Report 8851226 (Version 1)
Quarter: 2012Q4

REPORT INFORMATION
  Report Type: 
  Country: US (occurrence: US)
  Receive Date: 20121019
  Receipt Date: 20121019
  Transmission Date: 20130627
  Serious: Yes (Other)
  Sender: FDA-Public Use
  Company Number: US-AMGEN-USASP2012066126

PATIENT
  Age: 83 Year
  Sex: Female

DRUGS (6)
  1. PROLIA [Suspect]
     Indication: PRODUCT USED FOR UNKNOWN INDICATION
     Dosage: 60 mg, q6mo
     Dates: start: 201207
  2. CARDIZEM                           /00489701/ [Concomitant]
     Dosage: UNK
  3. ASPIRIN [Concomitant]
     Dosage: UNK UNK, qwk
  4. ANTIHYPERTENSIVES [Concomitant]
     Dosage: UNK
  5. DIURETICS [Concomitant]
     Dosage: UNK
  6. DEVIL^S CLAW [Concomitant]
     Dosage: UNK

REACTIONS (13)
  - Haemorrhage [Unknown]
  - Laceration [Unknown]
  - Rash [Unknown]
  - Paraesthesia [Not Recovered/Not Resolved]
  - Hypoaesthesia [Unknown]
  - Chest discomfort [Unknown]
  - Urticaria [Unknown]
  - Back pain [Recovering/Resolving]
  - Fall [Unknown]
  - Hepatic enzyme increased [Not Recovered/Not Resolved]
  - Pruritus [Unknown]
  - Paraesthesia oral [Not Recovered/Not Resolved]
  - Hypoaesthesia oral [Unknown]
